FAERS Safety Report 4972356-2 (Version None)
Quarter: 2006Q1

REPORT INFORMATION
  Report Type: 
  Country: None (occurrence: None)
  Receive Date: 20060215
  Receipt Date: 20051122
  Transmission Date: 20060701
  Serious: No
  Sender: FDA-Public Use
  Company Number: US200511002552

PATIENT
  Age: 66 Year
  Sex: Male

DRUGS (4)
  1. CIALIS [Suspect]
     Indication: ERECTILE DYSFUNCTION
     Dosage: 10 MG,;  15 MG,
     Dates: start: 20051001
  2. CIALIS [Suspect]
     Indication: ERECTILE DYSFUNCTION
     Dosage: 10 MG,;  15 MG,
     Dates: start: 20051101
  3. LOTREL [Concomitant]
  4. CIALIS [Suspect]
     Dosage: 20 MG,
     Dates: start: 20051101

REACTIONS (4)
  - DISCOMFORT [None]
  - DRUG INEFFECTIVE [None]
  - SPONTANEOUS PENILE ERECTION [None]
  - THERAPEUTIC RESPONSE DECREASED [None]
